FAERS Safety Report 21022923 (Version 1)
Quarter: 2022Q2

REPORT INFORMATION
  Report Type: Report from Study
  Country: US (occurrence: US)
  Receive Date: 20220629
  Receipt Date: 20220629
  Transmission Date: 20220721
  Serious: Yes (Hospitalization)
  Sender: FDA-Public Use
  Company Number: US-HORIZON THERAPEUTICS-HZN-2022-003852

PATIENT

DRUGS (2)
  1. KRYSTEXXA [Suspect]
     Active Substance: PEGLOTICASE
     Indication: Product used for unknown indication
     Dosage: FIRST INFUSION
     Route: 042
     Dates: start: 20220505
  2. KRYSTEXXA [Suspect]
     Active Substance: PEGLOTICASE
     Dosage: INFUSION
     Route: 042

REACTIONS (5)
  - Headache [Unknown]
  - Back pain [Unknown]
  - Hypoaesthesia [Unknown]
  - Chest pain [Unknown]
  - Feeling cold [Unknown]

NARRATIVE: CASE EVENT DATE: 20220501
